FAERS Safety Report 18585481 (Version 1)
Quarter: 2020Q4

REPORT INFORMATION
  Report Type: Spontaneous
  Country: AT (occurrence: AT)
  Receive Date: 20201207
  Receipt Date: 20201207
  Transmission Date: 20210114
  Serious: Yes (Hospitalization, Other)
  Sender: FDA-Public Use
  Company Number: AT-AAVISPHARMA-2020AP000006

PATIENT

DRUGS (1)
  1. AMPHETAMINE SULFATE. [Suspect]
     Active Substance: AMPHETAMINE SULFATE

REACTIONS (10)
  - C-reactive protein increased [Unknown]
  - White blood cell count increased [Unknown]
  - Abdominal pain [Unknown]
  - Nausea [Unknown]
  - Alcohol interaction [Unknown]
  - Intestinal ischaemia [Unknown]
  - Vasoconstriction [Unknown]
  - Blood lactic acid increased [Unknown]
  - Weight decreased [Unknown]
  - Diarrhoea [Unknown]
